FAERS Safety Report 22382628 (Version 1)
Quarter: 2023Q2

REPORT INFORMATION
  Report Type: Spontaneous
  Country: US (occurrence: US)
  Receive Date: 20230530
  Receipt Date: 20230530
  Transmission Date: 20230722
  Serious: Yes (Hospitalization)
  Sender: FDA-Public Use
  Company Number: US-MYLANLABS-2023M1054233

PATIENT
  Age: 45 Year
  Sex: Male
  Weight: 85.5 kg

DRUGS (8)
  1. GABAPENTIN [Suspect]
     Active Substance: GABAPENTIN
     Indication: Anxiety
     Dosage: 300 MILLIGRAM (STOP DATE: 11--/2022)
     Route: 065
     Dates: end: 202211
  2. ABILIFY [Suspect]
     Active Substance: ARIPIPRAZOLE
     Indication: Bipolar disorder
     Dosage: 10 MILLIGRAM (THERAPY START DATE: 2023)
     Route: 048
  3. ABILIFY [Suspect]
     Active Substance: ARIPIPRAZOLE
     Dosage: 5 MILLIGRAM
     Route: 065
     Dates: start: 20220304
  4. ABILIFY [Suspect]
     Active Substance: ARIPIPRAZOLE
     Dosage: 2 MILLIGRAM
     Route: 065
  5. ABILIFY [Suspect]
     Active Substance: ARIPIPRAZOLE
     Dosage: 2.5 MILLIGRAM
     Route: 065
  6. DEPAKOTE [Suspect]
     Active Substance: DIVALPROEX SODIUM
     Indication: Insomnia
     Dosage: 500 MILLIGRAM (AT BED TIME)
     Route: 065
  7. DEPAKOTE [Suspect]
     Active Substance: DIVALPROEX SODIUM
     Dosage: 25 MILLIGRAM
     Route: 065
  8. RISPERDAL [Concomitant]
     Active Substance: RISPERIDONE
     Dosage: 2 MILLIGRAM
     Route: 065
     Dates: end: 2022

REACTIONS (10)
  - Abnormal behaviour [Unknown]
  - Crying [Recovering/Resolving]
  - Immune system disorder [Unknown]
  - Libido increased [Not Recovered/Not Resolved]
  - Depression [Recovering/Resolving]
  - Tremor [Recovering/Resolving]
  - Agitation [Recovering/Resolving]
  - Anxiety [Unknown]
  - Insomnia [Not Recovered/Not Resolved]
  - Underdose [Not Recovered/Not Resolved]

NARRATIVE: CASE EVENT DATE: 20220304
